FAERS Safety Report 10685589 (Version 1)
Quarter: 2014Q4

REPORT INFORMATION
  Report Type: Spontaneous
  Country: US (occurrence: US)
  Receive Date: 20141231
  Receipt Date: 20141231
  Transmission Date: 20150529
  Serious: No
  Sender: FDA-Public Use
  Company Number: US-TARO-2014P1003635

PATIENT
  Sex: Female
  Weight: 74.84 kg

DRUGS (10)
  1. ADVAIR DISKUS 550 [Concomitant]
     Dosage: BID
  2. COMBIVENT [Concomitant]
     Active Substance: ALBUTEROL SULFATE\IPRATROPIUM BROMIDE
  3. HYDROCORTISONE CREAM USP 2.5% [Suspect]
     Active Substance: HYDROCORTISONE
     Indication: RASH
     Route: 061
     Dates: start: 2012
  4. CLONAZEPAM. [Concomitant]
     Active Substance: CLONAZEPAM
     Dosage: 5 MG
  5. MULTIVITAMIN [Concomitant]
     Active Substance: VITAMINS
  6. ZETIA [Concomitant]
     Active Substance: EZETIMIBE
     Dosage: 10 MG
  7. FLONASE SPRAY [Concomitant]
  8. ALBUTEROL NEBULIZER [Concomitant]
     Active Substance: ALBUTEROL
  9. PAROXETINE [Concomitant]
     Active Substance: PAROXETINE\PAROXETINE HYDROCHLORIDE
     Dosage: 20 MG
  10. SIMVASTATIN. [Concomitant]
     Active Substance: SIMVASTATIN

REACTIONS (1)
  - Drug ineffective [Not Recovered/Not Resolved]

NARRATIVE: CASE EVENT DATE: 2012
